FAERS Safety Report 11485692 (Version 1)
Quarter: 2015Q3

REPORT INFORMATION
  Report Type: Spontaneous
  Country: US (occurrence: None)
  Receive Date: 20150909
  Receipt Date: 20150909
  Transmission Date: 20151125
  Serious: Yes (Life-Threatening, Disabling, Other)
  Sender: FDA-Public Use
  Company Number: None

PATIENT
  Age: 54 Year
  Sex: Female

DRUGS (1)
  1. ALPRAZOLAM 0.25 MG [Suspect]
     Active Substance: ALPRAZOLAM
     Indication: PANIC ATTACK
     Route: 048
     Dates: start: 20150903, end: 20150907

REACTIONS (15)
  - Tremor [None]
  - Rash [None]
  - Urticaria [None]
  - Seizure [None]
  - Confusional state [None]
  - Feeling abnormal [None]
  - Mood swings [None]
  - Diarrhoea [None]
  - Decreased appetite [None]
  - Oropharyngeal pain [None]
  - Libido increased [None]
  - Dizziness [None]
  - Pruritus [None]
  - Skin discolouration [None]
  - Dyspnoea [None]

NARRATIVE: CASE EVENT DATE: 20150902
